FAERS Safety Report 6446911-7 (Version None)
Quarter: 2009Q4

REPORT INFORMATION
  Report Type: 
  Country: None (occurrence: None)
  Receive Date: 20091110
  Receipt Date: 20090917
  Transmission Date: 20100525
  Serious: Yes (Other)
  Sender: FDA-Public Use
  Company Number: 1000008938

PATIENT
  Age: 48 Year
  Sex: Male

DRUGS (6)
  1. SAVELLA [Suspect]
     Indication: FIBROMYALGIA
     Dosage: 12.5 MG (12.5 MG, 1 IN 1 D), ORAL; 25 MG (12.5 MG, 2 IN 1 D), ORAL;  50 MG (25 MG, 2 IN 1 D),ORAL
     Route: 048
     Dates: start: 20090707, end: 20090707
  2. SAVELLA [Suspect]
     Indication: FIBROMYALGIA
     Dosage: 12.5 MG (12.5 MG, 1 IN 1 D), ORAL; 25 MG (12.5 MG, 2 IN 1 D), ORAL;  50 MG (25 MG, 2 IN 1 D),ORAL
     Route: 048
     Dates: start: 20090708, end: 20090709
  3. SAVELLA [Suspect]
     Indication: FIBROMYALGIA
     Dosage: 12.5 MG (12.5 MG, 1 IN 1 D), ORAL; 25 MG (12.5 MG, 2 IN 1 D), ORAL;  50 MG (25 MG, 2 IN 1 D),ORAL
     Route: 048
     Dates: start: 20090710, end: 20090713
  4. SAVELLA [Suspect]
     Indication: FIBROMYALGIA
     Dosage: 100 MG (50 MG; 2-IN 1 D), ORAL
     Route: 048
     Dates: start: 20090714, end: 20090901
  5. OXXCODONE [Concomitant]
  6. TIZANIDINE HCL [Concomitant]

REACTIONS (4)
  - ANGER [None]
  - DEPRESSION [None]
  - FEELING JITTERY [None]
  - SUICIDAL IDEATION [None]
